FAERS Safety Report 5520507-3 (Version None)
Quarter: 2007Q4

REPORT INFORMATION
  Report Type: 
  Country: None (occurrence: None)
  Receive Date: 20071119
  Receipt Date: 20071105
  Transmission Date: 20080405
  Serious: Yes (Other)
  Sender: FDA-Public Use
  Company Number: US-PFIZER INC-2007083494

PATIENT
  Sex: Female
  Weight: 63.5 kg

DRUGS (1)
  1. CHANTIX [Suspect]
     Indication: SMOKING CESSATION THERAPY
     Dates: start: 20070701, end: 20070901

REACTIONS (5)
  - BLINDNESS TRANSIENT [None]
  - DISORIENTATION [None]
  - DIZZINESS [None]
  - EYE MOVEMENT DISORDER [None]
  - VISION BLURRED [None]
